FAERS Safety Report 6208757-4 (Version None)
Quarter: 2009Q2

REPORT INFORMATION
  Report Type: 
  Country: None (occurrence: None)
  Receive Date: 20090529
  Receipt Date: 20090528
  Transmission Date: 20091009
  Serious: Yes (Life-Threatening)
  Sender: FDA-Public Use
  Company Number: JP-BAYER-200911091BYL

PATIENT
  Age: 54 Year
  Sex: Female
  Weight: 69 kg

DRUGS (5)
  1. NEXAVAR [Suspect]
     Indication: RENAL CELL CARCINOMA STAGE IV
     Dosage: TOTAL DAILY DOSE: 800 MG  UNIT DOSE: 200 MG
     Route: 048
     Dates: start: 20090217, end: 20090406
  2. NIVADIL [Concomitant]
     Dosage: TOTAL DAILY DOSE: 8 MG
     Route: 048
  3. MARZULENE-S [Concomitant]
     Dosage: TOTAL DAILY DOSE: 1.5 MG
     Route: 048
  4. PARIET [Concomitant]
     Dosage: TOTAL DAILY DOSE: 10 MG
     Route: 048
  5. TRANSAMIN [Concomitant]
     Dosage: TOTAL DAILY DOSE: 750 MG
     Route: 048

REACTIONS (2)
  - HEPATITIS [None]
  - PALMAR-PLANTAR ERYTHRODYSAESTHESIA SYNDROME [None]
